FAERS Safety Report 8590269-4 (Version None)
Quarter: 2012Q3

REPORT INFORMATION
  Report Type: 
  Country: None (occurrence: None)
  Receive Date: 20120813
  Receipt Date: 20120808
  Transmission Date: 20120928
  Serious: Yes (Death, Life-Threatening, Hospitalization, Disabling)
  Sender: FDA-Public Use
  Company Number: US-GLAXOSMITHKLINE-A0984796A

PATIENT
  Age: 54 Year
  Sex: Male

DRUGS (8)
  1. NORVASC [Concomitant]
  2. VENTOLIN [Suspect]
     Indication: CHRONIC OBSTRUCTIVE PULMONARY DISEASE
     Dosage: 2PUFF UNKNOWN
     Route: 055
     Dates: start: 20120201, end: 20120714
  3. TOPROL-XL [Concomitant]
  4. METFORMIN HYDROCHLORIDE [Concomitant]
  5. FLUTICASONE PROPIONATE [Suspect]
     Indication: CHRONIC OBSTRUCTIVE PULMONARY DISEASE
     Dosage: 1PUFF TWICE PER DAY
     Route: 055
     Dates: start: 20120201, end: 20120714
  6. LOVASTATIN [Concomitant]
  7. SPIRIVA [Concomitant]
  8. HYZAAR [Concomitant]

REACTIONS (3)
  - NEOPLASM PROGRESSION [None]
  - NEOPLASM [None]
  - LUNG NEOPLASM [None]
